FAERS Safety Report 9097145 (Version 1)
Quarter: 2013Q1

REPORT INFORMATION
  Report Type: Spontaneous
  Country: US (occurrence: US)
  Receive Date: 20130212
  Receipt Date: 20130212
  Transmission Date: 20140127
  Serious: Yes (Hospitalization, Disabling, Other)
  Sender: FDA-Public Use
  Company Number: US-009507513-2010SP050517

PATIENT
  Sex: Female
  Weight: 47.63 kg

DRUGS (6)
  1. NUVARING [Suspect]
     Indication: CONTRACEPTION
     Dosage: 1 DF, QM
     Dates: start: 200310
  2. COUMADIN [Suspect]
     Indication: THROMBOSIS
  3. [COMPOSITION UNSPECIFIED] [Suspect]
     Indication: PRODUCT USED FOR UNKNOWN INDICATION
  4. CORTICOSTEROIDS (UNSPECIFIED) [Suspect]
     Indication: PRODUCT USED FOR UNKNOWN INDICATION
  5. METICORTEN [Concomitant]
     Indication: COLITIS ULCERATIVE
  6. COLAZAL [Concomitant]
     Indication: COLITIS ULCERATIVE

REACTIONS (19)
  - Gastrointestinal haemorrhage [Unknown]
  - Anaemia [Unknown]
  - Nephrolithiasis [Unknown]
  - Hydronephrosis [Unknown]
  - Vitamin B12 deficiency [Unknown]
  - Smear cervix abnormal [Unknown]
  - Deep vein thrombosis [Recovered/Resolved]
  - Thrombosis [Unknown]
  - Colitis ulcerative [Not Recovered/Not Resolved]
  - Increased tendency to bruise [Unknown]
  - Anxiety [Unknown]
  - Insomnia [Unknown]
  - Poor venous access [Unknown]
  - Osteopenia [Unknown]
  - Dyspnoea [Unknown]
  - Alopecia [Unknown]
  - Candida infection [Unknown]
  - Urinary tract infection [Unknown]
  - Chloasma [Unknown]
